FAERS Safety Report 9816887 (Version 1)
Quarter: 2014Q1

REPORT INFORMATION
  Report Type: Spontaneous
  Country: US (occurrence: US)
  Receive Date: 20140114
  Receipt Date: 20140114
  Transmission Date: 20141002
  Serious: No
  Sender: FDA-Public Use
  Company Number: US-TEVA-455169USA

PATIENT
  Age: 64 Year
  Sex: Female
  Weight: 54.48 kg

DRUGS (6)
  1. AZILECT [Suspect]
     Indication: PARKINSON^S DISEASE
     Dosage: 1 MILLIGRAM DAILY;
     Route: 048
     Dates: start: 2013
  2. FLU [Concomitant]
  3. SINEMET CR [Concomitant]
     Indication: PARKINSON^S DISEASE
  4. ROPINIROLE [Concomitant]
     Indication: PARKINSON^S DISEASE
  5. AMLODIPINE [Concomitant]
     Indication: HYPERTENSION
  6. VITAMIN D3 [Concomitant]

REACTIONS (6)
  - Cough [Not Recovered/Not Resolved]
  - Rhinorrhoea [Unknown]
  - Headache [Not Recovered/Not Resolved]
  - Insomnia [Not Recovered/Not Resolved]
  - Nasal congestion [Not Recovered/Not Resolved]
  - Pain [Not Recovered/Not Resolved]
